FAERS Safety Report 15419995 (Version 1)
Quarter: 2018Q3

REPORT INFORMATION
  Report Type: Spontaneous
  Country: US (occurrence: US)
  Receive Date: 20180924
  Receipt Date: 20180924
  Transmission Date: 20181010
  Serious: No
  Sender: FDA-Public Use
  Company Number: US-VIFOR (INTERNATIONAL) INC.-VIT-2018-08974

PATIENT
  Age: 37 Year
  Sex: Female
  Weight: 49.8 kg

DRUGS (1)
  1. MIRCERA [Suspect]
     Active Substance: METHOXY POLYETHYLENE GLYCOL-EPOETIN BETA
     Indication: PRODUCT USED FOR UNKNOWN INDICATION

REACTIONS (4)
  - Hot flush [Unknown]
  - Throat tightness [Unknown]
  - Unevaluable event [Unknown]
  - Palpitations [Unknown]

NARRATIVE: CASE EVENT DATE: 20180908
